FAERS Safety Report 18220330 (Version 2)
Quarter: 2020Q3

REPORT INFORMATION
  Report Type: Spontaneous
  Country: CA (occurrence: CA)
  Receive Date: 20200902
  Receipt Date: 20200925
  Transmission Date: 20201103
  Serious: Yes (Hospitalization, Other)
  Sender: FDA-Public Use
  Company Number: CA-OCTA-NGAM04920CA

PATIENT
  Age: 72 Year
  Sex: Female

DRUGS (1)
  1. PANZYGA [Suspect]
     Active Substance: HUMAN IMMUNOGLOBULIN G
     Indication: HYPOGAMMAGLOBULINAEMIA
     Route: 042
     Dates: start: 20200817, end: 20200817

REACTIONS (9)
  - Hypoxia [Unknown]
  - Chills [Unknown]
  - Tachypnoea [Unknown]
  - Transfusion-related acute lung injury [Unknown]
  - Dyspnoea [Unknown]
  - Pain in jaw [Unknown]
  - Hypertension [Unknown]
  - Headache [Unknown]
  - Chest pain [Unknown]

NARRATIVE: CASE EVENT DATE: 20200817
